FAERS Safety Report 7104777-6 (Version None)
Quarter: 2010Q4

REPORT INFORMATION
  Report Type: 
  Country: None (occurrence: None)
  Receive Date: 20101109
  Receipt Date: 20101027
  Transmission Date: 20110411
  Serious: Yes (Death)
  Sender: FDA-Public Use
  Company Number: 011162

PATIENT
  Age: 78 Year
  Sex: Male

DRUGS (7)
  1. SAMSCA [Suspect]
     Indication: HYPONATRAEMIA
     Dosage: 15 MG, QD, ORAL
     Route: 048
     Dates: start: 20100724, end: 20100730
  2. SAMSCA [Suspect]
     Indication: INAPPROPRIATE ANTIDIURETIC HORMONE SECRETION
     Dosage: 15 MG, QD, ORAL
     Route: 048
     Dates: start: 20100724, end: 20100730
  3. DEXAMETHASONE [Concomitant]
  4. ATORVASTATIN CALCIUM [Concomitant]
  5. RAMIPRIL [Concomitant]
  6. AMOXICILLIN AND CLAVULANATE POTASSIUM [Concomitant]
  7. DIGOXIN [Concomitant]

REACTIONS (1)
  - METASTATIC NEOPLASM [None]
